FAERS Safety Report 7811335-4 (Version None)
Quarter: 2011Q4

REPORT INFORMATION
  Report Type: 
  Country: None (occurrence: None)
  Receive Date: 20111011
  Receipt Date: 20110929
  Transmission Date: 20120403
  Serious: Yes (Hospitalization)
  Sender: FDA-Public Use
  Company Number: CIP11002514

PATIENT
  Sex: Female
  Weight: 48 kg

DRUGS (5)
  1. ACTONEL [Suspect]
     Indication: OSTEOPOROSIS
     Dosage: 35 MG ONCE WEEKLY, ORAL
     Route: 048
     Dates: start: 20100101, end: 20100701
  2. CIT ONEURIN /00176001/ (CYANOCOBALAMIN, PYRIDOXINE HYDROCHLORIDE, THIA [Concomitant]
  3. VITAMIN D /00318501/ (COLECALCIFEROL) [Concomitant]
  4. ENDOFOLIN /00024201/ (FOLIC ACID) [Concomitant]
  5. FLUOXETINA (FLUOXETINE HYDROCHLORIDE) [Concomitant]

REACTIONS (5)
  - PLATELET COUNT DECREASED [None]
  - NEPHROLITHIASIS [None]
  - ANAEMIA [None]
  - SURGERY [None]
  - HEPATITIS C [None]
